FAERS Safety Report 4417808-9 (Version None)
Quarter: 2004Q2

REPORT INFORMATION
  Report Type: 
  Country: None (occurrence: None)
  Receive Date: 20040625
  Receipt Date: 20030730
  Transmission Date: 20050107
  Serious: No
  Sender: FDA-Public Use
  Company Number: 2003UW08360

PATIENT
  Age: 19 Year
  Sex: Female
  Weight: 97.977 kg

DRUGS (2)
  1. SENSORCAINE [Suspect]
     Indication: CAESAREAN SECTION
     Dosage: 10 MG ED
     Dates: start: 20030701, end: 20030701
  2. SENSORCAINE [Suspect]
     Indication: SPINAL ANAESTHESIA
     Dosage: 10 MG ED
     Dates: start: 20030701, end: 20030701

REACTIONS (1)
  - DRUG INEFFECTIVE [None]
